FAERS Safety Report 5449581-X (Version None)
Quarter: 2007Q3

REPORT INFORMATION
  Report Type: 
  Country: None (occurrence: None)
  Receive Date: 20070910
  Receipt Date: 20070824
  Transmission Date: 20080115
  Serious: Yes (Life-Threatening)
  Sender: FDA-Public Use
  Company Number: 0708-690

PATIENT
  Age: 3 Day
  Sex: Male

DRUGS (5)
  1. CUROSURF [Suspect]
     Indication: RESPIRATORY DISTRESS
     Dosage: 240MG, ENDOTRACHEAL
     Route: 007
     Dates: start: 20070720
  2. AMPICILLIN [Concomitant]
  3. CLAFORAN [Concomitant]
  4. MERONEM (MEROPENEM) [Concomitant]
  5. VANCOMYCIN [Concomitant]

REACTIONS (3)
  - LEUKOPENIA [None]
  - SEPSIS [None]
  - THROMBOCYTOPENIA [None]
